FAERS Safety Report 21130850 (Version 1)
Quarter: 2022Q3

REPORT INFORMATION
  Report Type: Report from Study
  Country: US (occurrence: US)
  Receive Date: 20220726
  Receipt Date: 20220726
  Transmission Date: 20221026
  Serious: Yes (Congenital Anomaly)
  Sender: FDA-Public Use
  Company Number: US-UCBSA-2022018835

PATIENT
  Age: 54 Year
  Sex: Female
  Weight: 130 kg

DRUGS (4)
  1. CERTOLIZUMAB PEGOL [Suspect]
     Active Substance: CERTOLIZUMAB PEGOL
     Indication: Rheumatoid arthritis
     Dosage: 400 MILLIGRAM, EV 4 WEEKS
     Route: 058
     Dates: start: 20211227, end: 20220421
  2. ENBREL [Concomitant]
     Active Substance: ETANERCEPT
     Indication: Product used for unknown indication
  3. HUMIRA [Concomitant]
     Active Substance: ADALIMUMAB
     Indication: Product used for unknown indication
  4. ORENCIA [Concomitant]
     Active Substance: ABATACEPT
     Indication: Product used for unknown indication

REACTIONS (2)
  - Parosmia [Not Recovered/Not Resolved]
  - Taste disorder [Recovered/Resolved]

NARRATIVE: CASE EVENT DATE: 20211227
